FAERS Safety Report 21361060 (Version 1)
Quarter: 2022Q3

REPORT INFORMATION
  Report Type: Spontaneous
  Country: DE (occurrence: None)
  Receive Date: 20220921
  Receipt Date: 20220921
  Transmission Date: 20221027
  Serious: Yes (Hospitalization)
  Sender: FDA-Public Use
  Company Number: 2022A318036

PATIENT
  Age: 81 Year
  Sex: Male
  Weight: 73 kg

DRUGS (15)
  1. ROFLUMILAST [Suspect]
     Active Substance: ROFLUMILAST
     Dosage: UNKNOWN, TABLETS
     Route: 048
  2. ASPIRIN [Suspect]
     Active Substance: ASPIRIN
     Dosage: 100 MG, 0-1-0-0, TABLETS
     Route: 048
  3. DIMETHICONE [Concomitant]
     Active Substance: DIMETHICONE
     Dosage: 64 MG/ML, 2-2-2-0, JUICE
     Route: 048
  4. MORPHINE [Concomitant]
     Active Substance: MORPHINE
     Dosage: 20 MG/ML, IF NECESSARY, DROPS
     Route: 048
  5. FORMOTEROL/ACLIDINIUM BROMIDE [Concomitant]
     Dosage: 400|12 ?G, 1-0-1-0, CAPSULES
     Route: 055
  6. POLYETHYLENE GLYCOLS [Concomitant]
     Active Substance: POLYETHYLENE GLYCOLS
     Dosage: 1-1-0-0, POWDER FOR SOLUTION FOR ORAL USE
     Route: 048
  7. RAMIPRIL [Concomitant]
     Active Substance: RAMIPRIL
     Dosage: 5 MG, 1-0-0-0, TABLETS
     Route: 048
  8. LORAZEPAM [Concomitant]
     Active Substance: LORAZEPAM
     Dosage: 1 MG, IF NEEDED, JUICE
     Route: 048
  9. CAPROS [Concomitant]
     Dosage: 30 MG, 1-0-1-0, SUSTAINED-RELEASE CAPSULES
     Route: 048
  10. PANTOPRAZOLE SODIUM [Concomitant]
     Active Substance: PANTOPRAZOLE SODIUM
     Dosage: 40 MG, 1-0-0-0, TABLETS
     Route: 048
  11. FERRO-SANOL DUODENAL [Concomitant]
     Active Substance: FERROUS GLYCINE SULFATE
     Dosage: 50 MG, 2-0-0-0, CAPSULES
     Route: 048
  12. DUTASTERID/TAMSULOSIN [Concomitant]
     Dosage: 0.5|0.4 MG, 1-0-0-0, CAPSULE
     Route: 048
  13. TORSEMIDE [Concomitant]
     Active Substance: TORSEMIDE
     Dosage: 5 MG, 1-0-0-0, TABLETS
     Route: 048
  14. LACTULOSE [Concomitant]
     Active Substance: LACTULOSE
     Dosage: 3.335 G/5ML, 1-1-0-0, SYRUP
     Route: 048
  15. BUDESONIDE [Concomitant]
     Active Substance: BUDESONIDE
     Dosage: 0.2 MG, 1-0-1-0, CAPSULE
     Route: 055

REACTIONS (6)
  - Anaemia [Unknown]
  - Genital haemorrhage [Unknown]
  - Muscular weakness [Unknown]
  - Asthenia [Unknown]
  - Diarrhoea [Unknown]
  - Haematochezia [Unknown]
